FAERS Safety Report 7907559-8 (Version None)
Quarter: 2011Q4

REPORT INFORMATION
  Report Type: 
  Country: None (occurrence: None)
  Receive Date: 20111109
  Receipt Date: 20111025
  Transmission Date: 20120403
  Serious: Yes (Other)
  Sender: FDA-Public Use
  Company Number: THQ2011A07081

PATIENT
  Age: 57 Year
  Sex: Male

DRUGS (4)
  1. INSULIN GLARGINE [Concomitant]
  2. ALPRAZOLAM [Concomitant]
  3. METFORMIN HCL [Concomitant]
  4. PIOGLITAZONE HYDROCHLORIDE [Suspect]
     Indication: DIABETES MELLITUS
     Dosage: 45 MG (15 MG, 3 IN 1 D)

REACTIONS (3)
  - BLOOD GLUCOSE FLUCTUATION [None]
  - RETINAL DETACHMENT [None]
  - GLYCOSYLATED HAEMOGLOBIN INCREASED [None]
